FAERS Safety Report 8816416 (Version 1)
Quarter: 2012Q4

REPORT INFORMATION
  Report Type: Spontaneous
  Country: GB (occurrence: None)
  Receive Date: 20120927
  Receipt Date: 20120927
  Transmission Date: 20130627
  Serious: Yes (Disabling)
  Sender: FDA-Public Use
  Company Number: GER/UKI/12/0025933

PATIENT
  Sex: Male
  Weight: 101.6 kg

DRUGS (2)
  1. QUETIAPINE [Suspect]
  2. CITALOPRAM (CITALOPRAM) [Suspect]
     Route: 048
     Dates: start: 2004, end: 20120827

REACTIONS (5)
  - Apathy [None]
  - Abnormal dreams [None]
  - Obsessive-compulsive disorder [None]
  - Fatigue [None]
  - Drug interaction [None]
